FAERS Safety Report 10482679 (Version 2)
Quarter: 2014Q4

REPORT INFORMATION
  Report Type: Report from Study
  Country: BR (occurrence: BR)
  Receive Date: 20140929
  Receipt Date: 20141014
  Transmission Date: 20150528
  Serious: Yes (Hospitalization, Other)
  Sender: FDA-Public Use
  Company Number: PHHY2014BR127271

PATIENT
  Sex: Male
  Weight: 80 kg

DRUGS (3)
  1. FORASEQ [Suspect]
     Active Substance: BUDESONIDE\FORMOTEROL FUMARATE
     Indication: LUNG DISORDER
     Dosage: 12/400 (UNIT UNKNOWN)
     Route: 065
  2. FORASEQ [Suspect]
     Active Substance: BUDESONIDE\FORMOTEROL FUMARATE
     Dosage: 2 DF (12/200 UG), BID
     Route: 055
     Dates: start: 201401
  3. IMATINIB [Concomitant]
     Active Substance: IMATINIB
     Indication: CHRONIC LEUKAEMIA
     Dosage: 1 DF, PER DAY
     Route: 048
     Dates: start: 201401

REACTIONS (7)
  - General physical health deterioration [Unknown]
  - Depressed mood [Unknown]
  - Cardiac disorder [Unknown]
  - Lung neoplasm malignant [Unknown]
  - Dyspnoea [Unknown]
  - Fatigue [Unknown]
  - Asthenia [Unknown]
